FAERS Safety Report 6407721-X (Version None)
Quarter: 2009Q4

REPORT INFORMATION
  Report Type: 
  Country: None (occurrence: None)
  Receive Date: 20091020
  Receipt Date: 20091009
  Transmission Date: 20100525
  Serious: Yes (Disabling)
  Sender: FDA-Public Use
  Company Number: FR-AVENTIS-200913795FR

PATIENT
  Age: 75 Year
  Sex: Female

DRUGS (3)
  1. LASIX [Suspect]
     Route: 048
     Dates: start: 20090407
  2. PLAVIX [Suspect]
     Indication: DRUG USE FOR UNKNOWN INDICATION
     Route: 048
     Dates: start: 20090407
  3. FLECAINIDE ACETATE [Suspect]
     Indication: ARRHYTHMIA
     Route: 048
     Dates: start: 20080901, end: 20090415

REACTIONS (1)
  - PULMONARY OEDEMA [None]
